FAERS Safety Report 9780155 (Version 1)
Quarter: 2013Q4

REPORT INFORMATION
  Report Type: Spontaneous
  Country: US (occurrence: US)
  Receive Date: 20131223
  Receipt Date: 20131223
  Transmission Date: 20140711
  Serious: No
  Sender: FDA-Public Use
  Company Number: US-TEVA-451311USA

PATIENT
  Age: 29 Year
  Sex: Female
  Weight: 135.75 kg

DRUGS (10)
  1. PROAIR HFA [Suspect]
     Indication: COUGH
     Route: 055
     Dates: start: 20131213
  2. TUSSIN DM [Concomitant]
     Indication: COUGH
     Dates: start: 20131212
  3. HALLS [Concomitant]
     Indication: COUGH
     Dates: start: 20131212
  4. CELEXA [Concomitant]
     Indication: DEPRESSION
     Dosage: 40 MILLIGRAM DAILY;
     Route: 048
  5. GABAPENTIN [Concomitant]
     Indication: SCIATIC NERVE INJURY
     Dosage: 600 MILLIGRAM DAILY;
     Route: 048
  6. TYLENOL [Concomitant]
     Indication: PAIN
  7. FIORICET [Concomitant]
     Indication: MIGRAINE
     Dosage: 50/325/40
  8. FIORICET [Concomitant]
     Indication: HEADACHE
  9. METHOCARBAMOL [Concomitant]
     Indication: MUSCLE RELAXANT THERAPY
     Route: 048
  10. NEBULIZED ALBUTEROL [Concomitant]
     Indication: HYPOPNOEA

REACTIONS (2)
  - Tremor [Recovering/Resolving]
  - Flushing [Recovering/Resolving]
